FAERS Safety Report 6292641-4 (Version None)
Quarter: 2009Q3

REPORT INFORMATION
  Report Type: 
  Country: None (occurrence: None)
  Receive Date: 20090729
  Receipt Date: 20090720
  Transmission Date: 20100115
  Serious: Yes (Hospitalization)
  Sender: FDA-Public Use
  Company Number: ADR10472009

PATIENT
  Age: 82 Year
  Sex: Female

DRUGS (5)
  1. AMLODIPINE [Suspect]
     Indication: HYPERTENSION
     Dosage: 5MG - 1/1 DAY ORAL
     Route: 048
     Dates: start: 20061027
  2. ISTIN (AMLODIPINE BESYLATE) (MFR UNKNOWN) [Suspect]
     Indication: TRANSIENT ISCHAEMIC ATTACK
     Dosage: 5MG - 1/1DAY ORAL
     Route: 048
     Dates: start: 20061227
  3. ASPIRIN [Concomitant]
  4. BENDROFLUMETHIAZIDE [Concomitant]
  5. EZETIMIBE [Concomitant]

REACTIONS (5)
  - CAROTID ARTERY BYPASS [None]
  - CEREBROVASCULAR ACCIDENT [None]
  - DEPRESSED MOOD [None]
  - DEPRESSION [None]
  - MALAISE [None]
